FAERS Safety Report 4668268-4 (Version None)
Quarter: 2005Q2

REPORT INFORMATION
  Report Type: 
  Country: None (occurrence: None)
  Receive Date: 20050523
  Receipt Date: 20040630
  Transmission Date: 20051028
  Serious: Yes (Other)
  Sender: FDA-Public Use
  Company Number: PHEH2004US07122

PATIENT
  Age: 46 Year
  Sex: Female

DRUGS (7)
  1. ZOMETA [Suspect]
     Indication: METASTASES TO BONE
     Dosage: 4 MG, QMO
     Route: 042
     Dates: start: 20020403, end: 20040401
  2. TAXOTERE [Concomitant]
     Indication: BREAST CANCER
     Dosage: 45MG Q2WEEKS
     Route: 042
     Dates: start: 20011210, end: 20020419
  3. AREDIA [Suspect]
     Indication: METASTASES TO BONE
     Dosage: 90 MG, QMO
     Dates: start: 19990317, end: 20011229
  4. HERCEPTIN [Concomitant]
     Dosage: 110 MG, QW
     Route: 042
     Dates: start: 19991014
  5. MEGACE [Concomitant]
     Indication: BREAST CANCER
     Dosage: UNK, UNK
     Dates: start: 20010614
  6. OXYCONTIN [Concomitant]
     Indication: PAIN
  7. PERCOCET [Concomitant]
     Indication: PAIN
     Dosage: UNK, PRN

REACTIONS (6)
  - BONE DEBRIDEMENT [None]
  - BONE DISORDER [None]
  - JAW DISORDER [None]
  - OSTEONECROSIS [None]
  - SEQUESTRECTOMY [None]
  - TOOTH EXTRACTION [None]
